FAERS Safety Report 4370552-9 (Version None)
Quarter: 2004Q2

REPORT INFORMATION
  Report Type: 
  Country: None (occurrence: None)
  Receive Date: 20040601
  Receipt Date: 20040119
  Transmission Date: 20050107
  Serious: Yes (Other)
  Sender: FDA-Public Use
  Company Number: US064555

PATIENT
  Sex: Female

DRUGS (6)
  1. ENBREL [Suspect]
     Indication: RHEUMATOID ARTHRITIS
     Dosage: 2 IN 1 WEEKS, SC
     Route: 058
     Dates: start: 20030301, end: 20030301
  2. ASPIRIN [Concomitant]
  3. LEVOTHRYOXINE SODIUM [Concomitant]
  4. SULFASALAZINE [Concomitant]
  5. METOPROLOL TARTRATE [Concomitant]
  6. ALENDRONATE SODIUM [Concomitant]

REACTIONS (1)
  - ANAEMIA [None]
